FAERS Safety Report 10331011 (Version 3)
Quarter: 2014Q3

REPORT INFORMATION
  Report Type: Spontaneous
  Country: US (occurrence: US)
  Receive Date: 20140722
  Receipt Date: 20140917
  Transmission Date: 20150326
  Serious: Yes (Other)
  Sender: FDA-Public Use
  Company Number: US-SA-2014SA095884

PATIENT
  Age: 34 Year
  Sex: Female

DRUGS (1)
  1. FABRAZYME [Suspect]
     Active Substance: AGALSIDASE BETA
     Indication: FABRY^S DISEASE
     Route: 042
     Dates: start: 201305

REACTIONS (6)
  - Osteopenia [Not Recovered/Not Resolved]
  - Thrombosis [Unknown]
  - Foot fracture [Not Recovered/Not Resolved]
  - Urine analysis abnormal [Unknown]
  - Pyrexia [Unknown]
  - Osteoporosis [Unknown]

NARRATIVE: CASE EVENT DATE: 201404
